FAERS Safety Report 10530448 (Version 2)
Quarter: 2014Q4

REPORT INFORMATION
  Report Type: Report from Study
  Country: KR (occurrence: KR)
  Receive Date: 20141021
  Receipt Date: 20141209
  Transmission Date: 20150528
  Serious: Yes (Death, Hospitalization)
  Sender: FDA-Public Use
  Company Number: KR-SA-2014SA143131

PATIENT
  Age: 84 Year
  Sex: Female

DRUGS (1)
  1. LANTUS [Suspect]
     Active Substance: INSULIN GLARGINE
     Indication: DIABETES MELLITUS
     Dosage: DOSE:11 UNIT(S)
     Route: 058
     Dates: end: 2014

REACTIONS (2)
  - Death [Fatal]
  - Cardiovascular disorder [Not Recovered/Not Resolved]

NARRATIVE: CASE EVENT DATE: 2014
